FAERS Safety Report 7214224-1 (Version None)
Quarter: 2010Q4

REPORT INFORMATION
  Report Type: 
  Country: None (occurrence: None)
  Receive Date: 20101126
  Receipt Date: 20100414
  Transmission Date: 20110411
  Serious: Yes (Life-Threatening, Hospitalization, Other)
  Sender: FDA-Public Use
  Company Number: WAES 1004USA02048

PATIENT
  Age: 81 Year
  Sex: Female

DRUGS (7)
  1. FOSAMAX [Suspect]
     Dosage: 70 MG/WKY/PO
     Route: 048
  2. CALCIUM (UNSPECIFIED) [Concomitant]
  3. DIGOXIN [Concomitant]
  4. DILTIAZEM HCL [Concomitant]
  5. LISINOPRIL [Concomitant]
  6. SIMVASTATIN [Concomitant]
  7. WARFARIN SODIUM [Concomitant]

REACTIONS (3)
  - FEMUR FRACTURE [None]
  - INCISION SITE ERYTHEMA [None]
  - WEIGHT DECREASED [None]
